FAERS Safety Report 8622040-9 (Version None)
Quarter: 2012Q3

REPORT INFORMATION
  Report Type: 
  Country: None (occurrence: None)
  Receive Date: 20120823
  Receipt Date: 20120823
  Transmission Date: 20120928
  Serious: Yes (Other)
  Sender: FDA-Public Use
  Company Number: None

PATIENT
  Age: 44 Year
  Sex: Female
  Weight: 148.3 kg

DRUGS (3)
  1. ZORTRESS [Suspect]
     Indication: RENAL TRANSPLANT
     Dosage: 3 MG, BID, ORAL
     Route: 048
     Dates: start: 20120405, end: 20120806
  2. PREDNISONE [Concomitant]
  3. ARANESP [Concomitant]

REACTIONS (2)
  - ANTIBODY TEST POSITIVE [None]
  - URINE PROTEIN/CREATININE RATIO INCREASED [None]
